FAERS Safety Report 7984416-2 (Version None)
Quarter: 2011Q4

REPORT INFORMATION
  Report Type: 
  Country: None (occurrence: None)
  Receive Date: 20111214
  Receipt Date: 20111130
  Transmission Date: 20120403
  Serious: Yes (Hospitalization)
  Sender: FDA-Public Use
  Company Number: AUR-APL-2011-06118

PATIENT
  Age: 75 Year
  Sex: Female

DRUGS (10)
  1. ALDACTONE [Suspect]
     Indication: PRODUCT USED FOR UNKNOWN INDICATION
     Dosage: ORAL
     Route: 048
  2. REPAGLINIDE [Concomitant]
  3. RAMIPRIL [Suspect]
     Indication: PRODUCT USED FOR UNKNOWN INDICATION
     Dosage: ORAL
     Route: 048
  4. ASPIRIN [Concomitant]
  5. EUCREAS (EUCREAS) [Concomitant]
  6. CLONAZEPAM [Concomitant]
  7. FUROSEMIDE [Suspect]
     Indication: PRODUCT USED FOR UNKNOWN INDICATION
     Dosage: 60 MG, 1 D, ORAL
     Route: 048
  8. NEXEN (NIMESULIDE) [Suspect]
     Indication: PRODUCT USED FOR UNKNOWN INDICATION
     Dosage: ORAL
     Route: 048
  9. DILTIAZEM HYDROCHLORIDE [Suspect]
     Indication: PRODUCT USED FOR UNKNOWN INDICATION
     Dosage: ORAL
     Route: 048
  10. SIMVASTATIN (SIMVASTATIN) [Concomitant]

REACTIONS (7)
  - HAEMODIALYSIS [None]
  - CONFUSIONAL STATE [None]
  - RENAL FAILURE ACUTE [None]
  - HYPERKALAEMIA [None]
  - BLOOD SODIUM DECREASED [None]
  - RENAL TUBULAR NECROSIS [None]
  - TREATMENT NONCOMPLIANCE [None]
